FAERS Safety Report 9337273 (Version 1)
Quarter: 2013Q2

REPORT INFORMATION
  Report Type: Spontaneous
  Country: FR (occurrence: FR)
  Receive Date: 20130607
  Receipt Date: 20130607
  Transmission Date: 20140414
  Serious: Yes (Hospitalization)
  Sender: FDA-Public Use
  Company Number: FR-PFIZER INC-2013168206

PATIENT
  Age: 74 Year
  Sex: Female

DRUGS (2)
  1. XANAX [Suspect]
     Dosage: THREE INTAKES
  2. ALPRAZOLAM TEVA [Suspect]
     Dosage: THREE INTAKES
     Route: 048

REACTIONS (3)
  - Overdose [Recovered/Resolved]
  - Gait disturbance [Recovered/Resolved]
  - Fall [Unknown]
